FAERS Safety Report 4651689-3 (Version None)
Quarter: 2005Q2

REPORT INFORMATION
  Report Type: 
  Country: None (occurrence: None)
  Receive Date: 20050404
  Receipt Date: 20041130
  Transmission Date: 20051028
  Serious: No
  Sender: FDA-Public Use
  Company Number: USA041184852

PATIENT
  Sex: Male

DRUGS (4)
  1. CYMBALTA [Suspect]
     Indication: GENERALISED ANXIETY DISORDER
     Dosage: 30 MG DAY
     Dates: start: 20041126, end: 20041128
  2. EFFEXOR [Concomitant]
  3. ZOCOR (SIMVASTATIN RATIOPHARM) [Concomitant]
  4. PLAVIX [Concomitant]

REACTIONS (4)
  - ANXIETY [None]
  - DYSPHONIA [None]
  - GAIT DISTURBANCE [None]
  - HEAD DISCOMFORT [None]
